FAERS Safety Report 7777074-3 (Version None)
Quarter: 2011Q3

REPORT INFORMATION
  Report Type: 
  Country: None (occurrence: None)
  Receive Date: 20110926
  Receipt Date: 20110926
  Transmission Date: 20111222
  Serious: Yes (Life-Threatening)
  Sender: FDA-Public Use
  Company Number: None

PATIENT
  Age: 75 Year
  Sex: Male
  Weight: 77.11 kg

DRUGS (1)
  1. PRADAXA [Suspect]
     Indication: ATRIAL FIBRILLATION
     Dosage: 1 TABLET
     Route: 048
     Dates: start: 20110419, end: 20110425

REACTIONS (6)
  - DYSPNOEA [None]
  - NAUSEA [None]
  - MALAISE [None]
  - DYSPEPSIA [None]
  - HEADACHE [None]
  - EPISTAXIS [None]
